FAERS Safety Report 7106557-4 (Version None)
Quarter: 2010Q4

REPORT INFORMATION
  Report Type: 
  Country: None (occurrence: None)
  Receive Date: 20101116
  Receipt Date: 20101105
  Transmission Date: 20110411
  Serious: Yes (Hospitalization, Other)
  Sender: FDA-Public Use
  Company Number: NL-ELI_LILLY_AND_COMPANY-NL201010005546

PATIENT
  Age: 81 Year
  Sex: Male

DRUGS (4)
  1. ALIMTA [Suspect]
     Dates: start: 20101006
  2. CARBOPLATIN [Concomitant]
     Dates: start: 20101006
  3. FOLIC ACID [Concomitant]
     Dosage: 5 MG, UNK
  4. FOLIC ACID [Concomitant]
     Dosage: 0.5 MG, UNK
     Dates: start: 20101019

REACTIONS (2)
  - HOSPITALISATION [None]
  - MEDICATION ERROR [None]
